FAERS Safety Report 6223406-7 (Version None)
Quarter: 2009Q2

REPORT INFORMATION
  Report Type: 
  Country: None (occurrence: None)
  Receive Date: 20090611
  Receipt Date: 20090601
  Transmission Date: 20091009
  Serious: Yes (Hospitalization, Other)
  Sender: FDA-Public Use
  Company Number: US-ELI_LILLY_AND_COMPANY-US200906000533

PATIENT
  Sex: Female

DRUGS (2)
  1. FORTEO [Suspect]
     Dosage: UNK, UNK
     Dates: start: 20090201, end: 20090201
  2. FORTEO [Suspect]
     Dates: start: 20090529

REACTIONS (4)
  - ERYTHEMA [None]
  - INJECTION SITE REACTION [None]
  - INJECTION SITE SCAB [None]
  - PULMONARY OEDEMA [None]
